FAERS Safety Report 8202757-0 (Version None)
Quarter: 2012Q1

REPORT INFORMATION
  Report Type: 
  Country: None (occurrence: None)
  Receive Date: 20120312
  Receipt Date: 20120312
  Transmission Date: 20120608
  Serious: Yes (Life-Threatening, Hospitalization)
  Sender: FDA-Public Use
  Company Number: None

PATIENT
  Sex: Female
  Weight: 87.996 kg

DRUGS (2)
  1. VIIBRYD [Concomitant]
     Dosage: 20MG
     Route: 048
     Dates: start: 20120210, end: 20120221
  2. VIIBRYD [Suspect]
     Indication: MAJOR DEPRESSION
     Dosage: 20.0 MG
     Route: 048
     Dates: start: 20120210, end: 20120221

REACTIONS (3)
  - SUICIDAL IDEATION [None]
  - OBSESSIVE THOUGHTS [None]
  - OVERDOSE [None]
